FAERS Safety Report 4332487-7 (Version None)
Quarter: 2004Q2

REPORT INFORMATION
  Report Type: 
  Country: None (occurrence: None)
  Receive Date: 20040401
  Receipt Date: 20040322
  Transmission Date: 20050107
  Serious: Yes (Hospitalization)
  Sender: FDA-Public Use
  Company Number: SE-JNJFOC-20040102679

PATIENT
  Age: 30 Year
  Sex: Male

DRUGS (3)
  1. REMICADE [Suspect]
     Indication: CROHN'S DISEASE
     Dosage: 400 MG, INTRAVENOUS
     Route: 042
     Dates: start: 20000101, end: 20031230
  2. ZYRTEC [Concomitant]
     Route: 048
  3. ACETAMINOPHEN [Concomitant]

REACTIONS (8)
  - ANAPHYLACTOID REACTION [None]
  - CHEST DISCOMFORT [None]
  - EYE REDNESS [None]
  - FLUSHING [None]
  - OBSTRUCTION [None]
  - TACHYCARDIA [None]
  - THROAT IRRITATION [None]
  - URTICARIA [None]
